FAERS Safety Report 10627687 (Version 2)
Quarter: 2014Q4

REPORT INFORMATION
  Report Type: Report from Study
  Country: BR (occurrence: BR)
  Receive Date: 20141205
  Receipt Date: 20141205
  Transmission Date: 20150529
  Serious: Yes (Hospitalization)
  Sender: FDA-Public Use
  Company Number: BR-BIOGENIDEC-2011BI012318

PATIENT
  Age: 51 Year
  Sex: Female
  Weight: 68 kg

DRUGS (4)
  1. LABIRIN [Concomitant]
     Active Substance: BETAHISTINE
     Indication: BALANCE DISORDER
  2. VERTIX [Concomitant]
     Indication: BALANCE DISORDER
  3. RIVOTRIL [Concomitant]
     Active Substance: CLONAZEPAM
     Indication: BALANCE DISORDER
  4. AVONEX [Suspect]
     Active Substance: INTERFERON BETA-1A
     Indication: MULTIPLE SCLEROSIS
     Route: 030
     Dates: start: 2008

REACTIONS (30)
  - Peripheral coldness [Not Recovered/Not Resolved]
  - Chills [Not Recovered/Not Resolved]
  - Dizziness [Unknown]
  - Hypotension [Recovered/Resolved]
  - Vertigo [Recovered/Resolved]
  - Depression [Not Recovered/Not Resolved]
  - Dyspnoea [Recovered/Resolved]
  - Ataxia [Not Recovered/Not Resolved]
  - Gait disturbance [Not Recovered/Not Resolved]
  - Muscular weakness [Not Recovered/Not Resolved]
  - Aphthous stomatitis [Recovered/Resolved]
  - Fatigue [Not Recovered/Not Resolved]
  - Asthenia [Not Recovered/Not Resolved]
  - Hyperhidrosis [Recovered/Resolved]
  - Pain in extremity [Not Recovered/Not Resolved]
  - Oropharyngeal pain [Recovered/Resolved]
  - Tremor [Not Recovered/Not Resolved]
  - Eye inflammation [Unknown]
  - Sluggishness [Not Recovered/Not Resolved]
  - Nuclear magnetic resonance imaging abnormal [Unknown]
  - Multiple sclerosis relapse [Recovered/Resolved]
  - Surgery [Recovered/Resolved]
  - Chest pain [Recovered/Resolved]
  - Muscle contractions involuntary [Recovered/Resolved]
  - Pyrexia [Not Recovered/Not Resolved]
  - Muscle spasticity [Not Recovered/Not Resolved]
  - Injection site paraesthesia [Not Recovered/Not Resolved]
  - Balance disorder [Unknown]
  - Limb injury [Recovered/Resolved]
  - Nausea [Recovered/Resolved]

NARRATIVE: CASE EVENT DATE: 2009
